FAERS Safety Report 7963112-1 (Version None)
Quarter: 2011Q4

REPORT INFORMATION
  Report Type: 
  Country: None (occurrence: None)
  Receive Date: 20111207
  Receipt Date: 20111202
  Transmission Date: 20120403
  Serious: Yes (Hospitalization)
  Sender: FDA-Public Use
  Company Number: AU-ROCHE-1016947

PATIENT
  Sex: Male
  Weight: 89 kg

DRUGS (10)
  1. AVASTIN [Suspect]
     Indication: GLIOBLASTOMA
     Dates: start: 20111116
  2. DOCUSATE [Concomitant]
     Route: 048
  3. CARBOPLATIN [Suspect]
     Indication: GLIOBLASTOMA
     Dates: start: 20111116
  4. RAMIPRIL [Concomitant]
     Route: 048
     Dates: start: 20020101, end: 20111122
  5. PROCHLORPERAZINE [Concomitant]
     Route: 048
     Dates: start: 20110801
  6. METOCLOPRAMIDE [Concomitant]
     Route: 048
     Dates: start: 20110817
  7. IBUPROFEN [Concomitant]
     Route: 048
  8. LISINOPRIL [Concomitant]
     Route: 048
     Dates: start: 20111122
  9. CLONAZEPAM [Concomitant]
     Route: 048
     Dates: start: 20110301
  10. RANITIDINE [Concomitant]
     Route: 048
     Dates: start: 20110801

REACTIONS (2)
  - METASTASES TO MENINGES [None]
  - HYPERTENSION [None]
